FAERS Safety Report 11655099 (Version 2)
Quarter: 2018Q4

REPORT INFORMATION
  Report Type: Spontaneous
  Country: PL (occurrence: PL)
  Receive Date: 20151023
  Receipt Date: 20181219
  Transmission Date: 20190204
  Serious: Yes (Death, Other)
  Sender: FDA-Public Use
  Company Number: PL-JNJFOC-20151016477

PATIENT

DRUGS (5)
  1. VINCRISTINE [Suspect]
     Active Substance: VINCRISTINE
     Indication: LYMPHOMA
     Route: 065
  2. CYCLOPHOSPHAMIDE. [Suspect]
     Active Substance: CYCLOPHOSPHAMIDE
     Indication: LYMPHOMA
     Route: 065
  3. DOXORUBICIN [Suspect]
     Active Substance: DOXORUBICIN
     Indication: LYMPHOMA
     Route: 042
  4. PREDNISOLONE. [Suspect]
     Active Substance: PREDNISOLONE
     Indication: LYMPHOMA
     Route: 065
  5. RITUXIMAB. [Suspect]
     Active Substance: RITUXIMAB
     Indication: LYMPHOMA
     Route: 065

REACTIONS (12)
  - Off label use [Unknown]
  - Cardiovascular disorder [Fatal]
  - Oedema peripheral [Unknown]
  - Systolic dysfunction [Unknown]
  - Angina pectoris [Unknown]
  - Arrhythmia [Unknown]
  - Cardiotoxicity [Unknown]
  - Product use in unapproved indication [Unknown]
  - Myocardial infarction [Unknown]
  - Syncope [Unknown]
  - Dyspnoea [Unknown]
  - Nocturia [Unknown]
